FAERS Safety Report 8952706 (Version 2)
Quarter: 2012Q4

REPORT INFORMATION
  Report Type: 
  Country: ES (occurrence: ES)
  Receive Date: 20121205
  Receipt Date: 20121218
  Transmission Date: 20130627
  Serious: Yes (Hospitalization, Other)
  Sender: FDA-Public Use
  Company Number: ES-UCBSA-072067

PATIENT
  Age: 22 Year
  Sex: Male

DRUGS (1)
  1. LEVETIRACETAM [Suspect]
     Indication: EPILEPSY
     Dates: start: 2012, end: 2012

REACTIONS (2)
  - Convulsion [Recovered/Resolved]
  - Status epilepticus [Recovered/Resolved]
